FAERS Safety Report 7178739-7 (Version None)
Quarter: 2010Q4

REPORT INFORMATION
  Report Type: 
  Country: None (occurrence: None)
  Receive Date: 20101221
  Receipt Date: 20100510
  Transmission Date: 20110411
  Serious: Yes (Hospitalization)
  Sender: FDA-Public Use
  Company Number: NO-RANBAXY-2010RR-33114

PATIENT
  Age: 57 Year
  Sex: Male

DRUGS (11)
  1. GLUCOPHAGE [Suspect]
     Indication: TYPE 2 DIABETES MELLITUS
     Dosage: UNK G , UNK
     Dates: start: 20040101
  2. GLIPIZIDE [Concomitant]
     Indication: TYPE 2 DIABETES MELLITUS
     Dosage: UNK
  3. GLIMEPIRIDE [Concomitant]
     Indication: TYPE 2 DIABETES MELLITUS
     Dosage: UNK
  4. SITAGLIPTIN [Concomitant]
     Indication: TYPE 2 DIABETES MELLITUS
     Dosage: UNK
  5. INSULIN [Concomitant]
     Indication: TYPE 2 DIABETES MELLITUS
     Dosage: UNK
  6. METAPROLOL [Concomitant]
  7. ISOSORBIDE MONONITRATE [Concomitant]
  8. RAMIPRIL [Concomitant]
  9. ATORVASTATIN [Concomitant]
  10. CLOPIDOGREL [Concomitant]
  11. LANSOPRAZOL [Concomitant]

REACTIONS (2)
  - DIARRHOEA [None]
  - HYPOMAGNESAEMIA [None]
